FAERS Safety Report 15726253 (Version 2)
Quarter: 2019Q1

REPORT INFORMATION
  Report Type: Spontaneous
  Country: BR (occurrence: BR)
  Receive Date: 20181216
  Receipt Date: 20190121
  Transmission Date: 20190417
  Serious: No
  Sender: FDA-Public Use
  Company Number: BR-AMGEN-BRASP2018176943

PATIENT
  Age: 66 Year
  Sex: Female

DRUGS (9)
  1. ENBREL [Suspect]
     Active Substance: ETANERCEPT
     Dosage: 50 MG, 1X/WEEK (ON MONDAYS)
     Route: 065
     Dates: start: 20181203, end: 20181203
  2. CAPTOPRIL. [Concomitant]
     Active Substance: CAPTOPRIL
     Dosage: UNK
     Dates: start: 2012
  3. CORTICORTEN [Concomitant]
     Active Substance: PREDNISONE
     Dosage: UNK
     Dates: start: 2015
  4. ENBREL [Suspect]
     Active Substance: ETANERCEPT
     Indication: RHEUMATOID ARTHRITIS
     Dosage: 50MG, 1X/WEEK (ON FRIDAYS)
     Route: 065
     Dates: start: 20181102, end: 20181123
  5. CALCIUM [Concomitant]
     Active Substance: CALCIUM
     Dosage: UNK
     Dates: start: 2015
  6. METHOTREXATE. [Concomitant]
     Active Substance: METHOTREXATE
     Indication: RHEUMATOID ARTHRITIS
     Dosage: UNK
     Dates: start: 2017
  7. ENBREL [Suspect]
     Active Substance: ETANERCEPT
     Dosage: 50MG, 1X/WEEK (ON THURDAYS)
     Route: 065
     Dates: start: 20181213
  8. ENBREL [Suspect]
     Active Substance: ETANERCEPT
     Indication: PRODUCT USED FOR UNKNOWN INDICATION
     Dosage: UNK
     Route: 065
     Dates: start: 20181009, end: 20181203
  9. AAS [Concomitant]
     Active Substance: ASPIRIN
     Dosage: UNK
     Dates: start: 2012

REACTIONS (1)
  - Drug ineffective [Unknown]
